FAERS Safety Report 5140850-X (Version None)
Quarter: 2006Q4

REPORT INFORMATION
  Report Type: 
  Country: None (occurrence: None)
  Receive Date: 20061025
  Receipt Date: 20061016
  Transmission Date: 20070319
  Serious: Yes (Other)
  Sender: FDA-Public Use
  Company Number: 2006101829

PATIENT
  Age: 91 Year
  Sex: Female
  Weight: 39.0093 kg

DRUGS (5)
  1. NORVASC [Suspect]
     Indication: HYPERTENSION
     Dosage: 2.5 MG (2.5 MG, 1 IN 1 D), ORAL
     Route: 048
     Dates: start: 20060701
  2. MULTI-VITAMINS [Concomitant]
  3. GENERAL NUTRIENTS (GENERAL NUTRIENTS) [Concomitant]
  4. ALL OTHER THERAPEUTIC PRODUCTS (ALL OTHER THERAPEUTIC PRODUCTS) [Concomitant]
  5. ANTIOXIDANTS (ANTIOXIDANTS) [Concomitant]

REACTIONS (6)
  - ABDOMINAL PAIN UPPER [None]
  - BLOOD PRESSURE INCREASED [None]
  - COUGH [None]
  - DECREASED APPETITE [None]
  - OXYGEN SATURATION DECREASED [None]
  - WEIGHT DECREASED [None]
